FAERS Safety Report 7867445-9 (Version None)
Quarter: 2011Q4

REPORT INFORMATION
  Report Type: 
  Country: None (occurrence: None)
  Receive Date: 20111028
  Receipt Date: 20111021
  Transmission Date: 20120403
  Serious: Yes (Other)
  Sender: FDA-Public Use
  Company Number: US-BAYER-2010-004361

PATIENT
  Age: 27 Year
  Sex: Female
  Weight: 97.959 kg

DRUGS (1)
  1. MIRENA [Suspect]
     Indication: CONTRACEPTION
     Dosage: 20 MCG/24HR, CONT
     Route: 015
     Dates: start: 20070710

REACTIONS (4)
  - MENSTRUATION IRREGULAR [None]
  - PREGNANCY [None]
  - PELVIC PAIN [None]
  - AMENORRHOEA [None]
